FAERS Safety Report 6862329-7 (Version None)
Quarter: 2010Q3

REPORT INFORMATION
  Report Type: 
  Country: None (occurrence: None)
  Receive Date: 20100721
  Receipt Date: 20100709
  Transmission Date: 20110219
  Serious: Yes (Congenital Anomaly, Other)
  Sender: FDA-Public Use
  Company Number: PHHY2010NL46127

PATIENT
  Age: 40 Year
  Sex: Male

DRUGS (3)
  1. CARBAMAZEPINE [Suspect]
     Route: 064
  2. PHENYTOIN [Suspect]
     Route: 064
  3. PHENOBARBITAL [Suspect]
     Route: 064

REACTIONS (37)
  - ABNORMAL BEHAVIOUR [None]
  - ANOMALY OF EXTERNAL EAR CONGENITAL [None]
  - ANTISOCIAL BEHAVIOUR [None]
  - AUTISM SPECTRUM DISORDER [None]
  - BORDERLINE PERSONALITY DISORDER [None]
  - COGNITIVE DISORDER [None]
  - COMMUNICATION DISORDER [None]
  - DECREASED EYE CONTACT [None]
  - DISTRACTIBILITY [None]
  - DISTURBANCE IN ATTENTION [None]
  - DRUG ABUSE [None]
  - DRUG EXPOSURE DURING PREGNANCY [None]
  - DYSMORPHISM [None]
  - EAR OPERATION [None]
  - EMOTIONAL DISORDER [None]
  - EXECUTIVE DYSFUNCTION [None]
  - EXHIBITIONISM [None]
  - FINGER HYPOPLASIA [None]
  - FOETAL ANTICONVULSANT SYNDROME [None]
  - HYPOSPADIAS [None]
  - IMPULSIVE BEHAVIOUR [None]
  - MENTAL DISABILITY [None]
  - MENTAL IMPAIRMENT [None]
  - MOTOR DEVELOPMENTAL DELAY [None]
  - NARCISSISTIC PERSONALITY DISORDER [None]
  - NOSE DEFORMITY [None]
  - PARANOID PERSONALITY DISORDER [None]
  - PERSONALITY DISORDER [None]
  - PYROMANIA [None]
  - RESTLESSNESS [None]
  - SCHIZOID PERSONALITY DISORDER [None]
  - SELF ESTEEM DECREASED [None]
  - SEXUALLY INAPPROPRIATE BEHAVIOUR [None]
  - SOCIAL AVOIDANT BEHAVIOUR [None]
  - SPEECH DISORDER DEVELOPMENTAL [None]
  - STRABISMUS [None]
  - URETHRAL REPAIR [None]
